FAERS Safety Report 21556678 (Version 1)
Quarter: 2022Q4

REPORT INFORMATION
  Report Type: Spontaneous
  Country: DE (occurrence: DE)
  Receive Date: 20221104
  Receipt Date: 20221104
  Transmission Date: 20230112
  Serious: Yes (Death)
  Sender: FDA-Public Use
  Company Number: DE-002147023-NVSC2022DE248295

PATIENT
  Age: 71 Year
  Sex: Male

DRUGS (1)
  1. VOTRIENT [Suspect]
     Active Substance: PAZOPANIB HYDROCHLORIDE
     Indication: Renal cell carcinoma
     Dosage: UNK (800)
     Route: 065
     Dates: start: 2021, end: 2022

REACTIONS (7)
  - Post procedural complication [Fatal]
  - Delirium [Fatal]
  - Sepsis [Fatal]
  - Fluid retention [Unknown]
  - Mucosal hypertrophy [Unknown]
  - Inguinal hernia [Unknown]
  - Diverticulum intestinal [Unknown]
